FAERS Safety Report 7132921-3 (Version None)
Quarter: 2010Q4

REPORT INFORMATION
  Report Type: 
  Country: None (occurrence: None)
  Receive Date: 20101202
  Receipt Date: 20101119
  Transmission Date: 20110411
  Serious: No
  Sender: FDA-Public Use
  Company Number: US-PFIZER INC-US-WYE-H18366310

PATIENT
  Sex: Female

DRUGS (3)
  1. PRISTIQ [Suspect]
     Indication: DEPRESSION
     Dosage: 50 MG, 1X/DAY
     Route: 065
  2. PRISTIQ [Suspect]
     Dosage: 100 MG, 1X/DAY
     Route: 065
  3. PRISTIQ [Suspect]
     Dosage: REDUCED HER DOSE BY ALTERNATING BETWEEN 50MG ONE DAY AND 100MG THE FOLLOWING DAY
     Route: 065

REACTIONS (5)
  - ANXIETY [None]
  - DISTURBANCE IN ATTENTION [None]
  - DRUG INEFFECTIVE [None]
  - THINKING ABNORMAL [None]
  - UNEVALUABLE EVENT [None]
